FAERS Safety Report 15693830 (Version 2)
Quarter: 2018Q4

REPORT INFORMATION
  Report Type: Spontaneous
  Country: US (occurrence: US)
  Receive Date: 20181206
  Receipt Date: 20181213
  Transmission Date: 20190205
  Serious: Yes (Other)
  Sender: FDA-Public Use
  Company Number: US-HORIZON-PRE-0534-2018

PATIENT
  Age: 49 Year
  Sex: Female

DRUGS (6)
  1. CAMBIA [Concomitant]
     Active Substance: DICLOFENAC POTASSIUM
  2. NORTRIPTYLINE [Concomitant]
     Active Substance: NORTRIPTYLINE
  3. LEVETIRACETAM. [Concomitant]
     Active Substance: LEVETIRACETAM
  4. HYDROXYZINE [Concomitant]
     Active Substance: HYDROXYZINE HYDROCHLORIDE
  5. RAYOS [Suspect]
     Active Substance: PREDNISONE
     Indication: RHEUMATOID ARTHRITIS
     Dosage: 5 MG TID
     Dates: start: 20180706, end: 201810
  6. VIMPAT [Concomitant]
     Active Substance: LACOSAMIDE

REACTIONS (7)
  - Fatigue [Recovered/Resolved]
  - Product supply issue [Recovered/Resolved]
  - Mood altered [Recovered/Resolved]
  - Steroid withdrawal syndrome [Unknown]
  - Headache [Recovered/Resolved]
  - Therapy cessation [Recovered/Resolved]
  - Off label use [Unknown]

NARRATIVE: CASE EVENT DATE: 20181116
